FAERS Safety Report 4460441-3 (Version None)
Quarter: 2004Q3

REPORT INFORMATION
  Report Type: 
  Country: None (occurrence: None)
  Receive Date: 20040928
  Receipt Date: 20040713
  Transmission Date: 20050211
  Serious: No
  Sender: FDA-Public Use
  Company Number: US-GLAXOSMITHKLINE-A0518090A

PATIENT
  Age: 65 Year
  Sex: Female

DRUGS (6)
  1. SEREVENT [Suspect]
     Indication: ILL-DEFINED DISORDER
     Route: 055
  2. ALBUTEROL [Concomitant]
     Route: 055
  3. AZMACORT [Concomitant]
     Route: 055
  4. ACCOLATE [Concomitant]
     Dosage: 20MG UNKNOWN
     Route: 048
  5. SYNTHROID [Concomitant]
     Dosage: 75MCG UNKNOWN
     Route: 048
  6. WELLBUTRIN SR [Concomitant]
     Route: 048

REACTIONS (1)
  - MOUTH ULCERATION [None]
